FAERS Safety Report 17452451 (Version 11)
Quarter: 2020Q2

REPORT INFORMATION
  Report Type: Report from Study
  Country: DE (occurrence: DE)
  Receive Date: 20200224
  Receipt Date: 20200427
  Transmission Date: 20200713
  Serious: Yes (Death, Hospitalization)
  Sender: FDA-Public Use
  Company Number: DE-EISAI MEDICAL RESEARCH-EC-2020-070145

PATIENT
  Age: 73 Year
  Sex: Male
  Weight: 83 kg

DRUGS (22)
  1. ASS 100 [Concomitant]
     Active Substance: ASPIRIN
     Dates: start: 200911
  2. LACTULOSE. [Concomitant]
     Active Substance: LACTULOSE
     Dates: start: 201801
  3. TILIDIN [Concomitant]
     Active Substance: NALOXONE HYDROCHLORIDE\TILIDINE HYDROCHLORIDE
     Dates: start: 20200120
  4. BIFITERAL [Concomitant]
     Active Substance: LACTULOSE
     Dates: start: 201801
  5. PEMBROLIZUMAB. [Suspect]
     Active Substance: PEMBROLIZUMAB
     Route: 041
     Dates: start: 20200203, end: 20200203
  6. PEMBROLIZUMAB. [Suspect]
     Active Substance: PEMBROLIZUMAB
     Indication: HEPATOCELLULAR CARCINOMA
     Route: 041
     Dates: start: 20191203, end: 20200113
  7. METOHEXAL SUCC [Concomitant]
     Active Substance: METOPROLOL SUCCINATE
     Dates: start: 200903
  8. LENVATINIB [Suspect]
     Active Substance: LENVATINIB
     Indication: HEPATOCELLULAR CARCINOMA
     Dosage: 12MG ONCE DAILY (FLUCTUATED DOSE)
     Route: 048
     Dates: start: 20191203, end: 20200209
  9. EZETIMIB [Concomitant]
     Active Substance: EZETIMIBE
     Dates: start: 201201
  10. L-THYROXIN [Concomitant]
     Active Substance: LEVOTHYROXINE SODIUM
     Dates: start: 20200121, end: 20200203
  11. LENVATINIB [Suspect]
     Active Substance: LENVATINIB
     Route: 048
     Dates: start: 20200210, end: 20200210
  12. ALLOPURINOL. [Concomitant]
     Active Substance: ALLOPURINOL
     Dates: start: 200901
  13. PROTEIN [Concomitant]
     Active Substance: PROTEIN
     Dates: start: 201801
  14. NOVALGIN [Concomitant]
     Dates: start: 201912
  15. ZOFRAN [Concomitant]
     Active Substance: ONDANSETRON HYDROCHLORIDE
     Dates: start: 201912
  16. SIMVASTATIN. [Concomitant]
     Active Substance: SIMVASTATIN
     Dates: start: 201201
  17. MAALOXAN [Concomitant]
     Active Substance: ALUMINUM HYDROXIDE\MAGNESIUM HYDROXIDE
     Dates: start: 20191209
  18. MOVICOL [Concomitant]
     Active Substance: POLYETHYLENE GLYCOL 3350\POTASSIUM CHLORIDE\SODIUM BICARBONATE\SODIUM CHLORIDE
     Dates: start: 20200114
  19. L-THYROXIN [Concomitant]
     Active Substance: LEVOTHYROXINE SODIUM
     Dates: start: 20200204
  20. PANTOPRAZOLE [Concomitant]
     Active Substance: PANTOPRAZOLE
     Dates: start: 201803
  21. DEKRISTOL [Concomitant]
     Active Substance: CHOLECALCIFEROL
     Dates: start: 201801
  22. AMLODIPINE [Concomitant]
     Active Substance: AMLODIPINE BESYLATE
     Dates: start: 20191210

REACTIONS (3)
  - Hepatic encephalopathy [Recovered/Resolved]
  - Prerenal failure [Fatal]
  - Ascites [Unknown]

NARRATIVE: CASE EVENT DATE: 20200210
